FAERS Safety Report 16977774 (Version 1)
Quarter: 2019Q4

REPORT INFORMATION
  Report Type: Spontaneous
  Country: US (occurrence: US)
  Receive Date: 20191031
  Receipt Date: 20191031
  Transmission Date: 20200122
  Serious: No
  Sender: FDA-Public Use
  Company Number: US-AMGEN-USASP2019176566

PATIENT
  Age: 49 Year
  Sex: Female

DRUGS (1)
  1. REPATHA [Suspect]
     Active Substance: EVOLOCUMAB
     Indication: CARDIAC DISORDER
     Dosage: 140 MILLIGRAM, Q2WK
     Route: 065

REACTIONS (4)
  - Incorrect dose administered by device [Unknown]
  - Accidental exposure to product [Unknown]
  - Wrong technique in product usage process [Unknown]
  - Injection site pain [Unknown]

NARRATIVE: CASE EVENT DATE: 20190921
